FAERS Safety Report 5804536-8 (Version None)
Quarter: 2008Q3

REPORT INFORMATION
  Report Type: 
  Country: None (occurrence: None)
  Receive Date: 20080707
  Receipt Date: 20080707
  Transmission Date: 20090109
  Serious: Yes (Hospitalization, Other)
  Sender: FDA-Public Use
  Company Number: None

PATIENT
  Age: 61 Year
  Sex: Female
  Weight: 80.7403 kg

DRUGS (1)
  1. BONIVA [Suspect]
     Indication: RESORPTION BONE INCREASED
     Dosage: 1 PILL MONTHLY PO
     Route: 048
     Dates: start: 20080604, end: 20080704

REACTIONS (3)
  - CHEST PAIN [None]
  - FEAR [None]
  - MYALGIA [None]
